FAERS Safety Report 22119305 (Version 1)
Quarter: 2023Q1

REPORT INFORMATION
  Report Type: Spontaneous
  Country: CH (occurrence: CH)
  Receive Date: 20230321
  Receipt Date: 20230321
  Transmission Date: 20230418
  Serious: Yes (Congenital Anomaly)
  Sender: FDA-Public Use
  Company Number: CH-002147023-NVSC2023CH058611

PATIENT
  Sex: Female

DRUGS (1)
  1. ERENUMAB [Suspect]
     Active Substance: ERENUMAB
     Indication: Foetal exposure during pregnancy
     Dosage: UNK, MATERNAL EXPOSURE DURING PREGNANCY:UNK
     Route: 064

REACTIONS (2)
  - Congenital diaphragmatic hernia [Unknown]
  - Foetal exposure during pregnancy [Unknown]
